FAERS Safety Report 5141071-7 (Version None)
Quarter: 2006Q4

REPORT INFORMATION
  Report Type: 
  Country: None (occurrence: None)
  Receive Date: 20061026
  Receipt Date: 20061018
  Transmission Date: 20070319
  Serious: Yes (Other)
  Sender: FDA-Public Use
  Company Number: 2006111588

PATIENT
  Sex: Male

DRUGS (1)
  1. XALATAN [Suspect]

REACTIONS (2)
  - BLINDNESS [None]
  - CHOROIDAL EFFUSION [None]
